FAERS Safety Report 8415242-8 (Version None)
Quarter: 2012Q2

REPORT INFORMATION
  Report Type: 
  Country: None (occurrence: None)
  Receive Date: 20120530
  Receipt Date: 20120514
  Transmission Date: 20120825
  Serious: Yes (Hospitalization)
  Sender: FDA-Public Use
  Company Number: JPI-P-020365

PATIENT
  Age: 77 Year
  Sex: Female
  Weight: 72.5755 kg

DRUGS (18)
  1. XYREM [Suspect]
     Indication: SOMNOLENCE
     Dosage: 4.5 GM (2.25 GM, 2 IN 1 D), ORAL, (UNKNOWN), ORAL, 5 GM (5 GM, 1 IN 1 D), ORAL
     Route: 048
     Dates: start: 20101108
  2. XYREM [Suspect]
     Indication: NARCOLEPSY
     Dosage: 4.5 GM (2.25 GM, 2 IN 1 D), ORAL, (UNKNOWN), ORAL, 5 GM (5 GM, 1 IN 1 D), ORAL
     Route: 048
     Dates: start: 20101108
  3. XYREM [Suspect]
     Indication: SOMNOLENCE
     Dosage: 4.5 GM (2.25 GM, 2 IN 1 D), ORAL, (UNKNOWN), ORAL, 5 GM (5 GM, 1 IN 1 D), ORAL
     Route: 048
     Dates: start: 20070921
  4. XYREM [Suspect]
     Indication: NARCOLEPSY
     Dosage: 4.5 GM (2.25 GM, 2 IN 1 D), ORAL, (UNKNOWN), ORAL, 5 GM (5 GM, 1 IN 1 D), ORAL
     Route: 048
     Dates: start: 20070921
  5. ROSUVASTATIN [Concomitant]
  6. CALCIUM [Concomitant]
  7. VITAMIN B-12 [Concomitant]
  8. LEVOTHYROXINE SODIUM [Concomitant]
  9. METHYLPHENIDATE [Concomitant]
  10. FEXOFENADINE [Concomitant]
  11. ALBUTEROL (INHALANT) [Concomitant]
  12. MAGNESIUM [Concomitant]
  13. AMLODIPINE [Concomitant]
  14. ESOMEPRAZOLE [Concomitant]
  15. VITAMIN B1 TAB [Concomitant]
  16. WARFARIN SODIUM [Concomitant]
  17. POTASSIUM [Concomitant]
  18. MONTELUKAST [Concomitant]

REACTIONS (13)
  - HEART RATE INCREASED [None]
  - ATRIAL FIBRILLATION [None]
  - LARYNGITIS [None]
  - PNEUMONIA [None]
  - PULMONARY OEDEMA [None]
  - PROTHROMBIN TIME PROLONGED [None]
  - FLUID RETENTION [None]
  - COMPULSIVE LIP BITING [None]
  - WEIGHT DECREASED [None]
  - DYSPNOEA [None]
  - BRONCHITIS [None]
  - INITIAL INSOMNIA [None]
  - COUGH [None]
